FAERS Safety Report 8251934-1 (Version None)
Quarter: 2012Q2

REPORT INFORMATION
  Report Type: 
  Country: None (occurrence: None)
  Receive Date: 20120402
  Receipt Date: 20120320
  Transmission Date: 20120825
  Serious: Yes (Other)
  Sender: FDA-Public Use
  Company Number: US-ALLERGAN-1203425US

PATIENT
  Age: 72 Year
  Sex: Male

DRUGS (5)
  1. NEURONTIN [Concomitant]
     Indication: PRODUCT USED FOR UNKNOWN INDICATION
     Dosage: 300 MG, QD
     Route: 048
  2. FLOMAX [Concomitant]
     Indication: BENIGN PROSTATIC HYPERPLASIA
     Dosage: 0.4 MG, QD
  3. TRICOR [Concomitant]
     Indication: HYPERCHOLESTEROLAEMIA
     Dosage: 145 MG, QD
  4. LUMIGAN [Suspect]
     Indication: PRODUCT USED FOR UNKNOWN INDICATION
     Dosage: 2 GTT, QHS
     Route: 047
     Dates: start: 20111227, end: 20120206
  5. ASPIRIN [Concomitant]
     Indication: CARDIOVASCULAR EVENT PROPHYLAXIS
     Dosage: 81 MG, QD
     Route: 048

REACTIONS (4)
  - DEEP VEIN THROMBOSIS [None]
  - MUSCLE TWITCHING [None]
  - EXCESSIVE EYE BLINKING [None]
  - CHILLS [None]
